FAERS Safety Report 5759326-1 (Version None)
Quarter: 2008Q2

REPORT INFORMATION
  Report Type: 
  Country: None (occurrence: None)
  Receive Date: 20080530
  Receipt Date: 20080515
  Transmission Date: 20081010
  Serious: Yes (Other)
  Sender: FDA-Public Use
  Company Number: JPI-P-003701

PATIENT
  Age: 34 Year
  Sex: Female

DRUGS (15)
  1. LUVOX [Suspect]
     Indication: DEPRESSION
     Dosage: 50 MG, 1 D), ORAL, 50 MG, 1 D), ORAL, 150 MG, 1 D, ORAL), 75 MG, 1 D, ORAL
     Route: 048
     Dates: start: 20080105, end: 20080118
  2. LUVOX [Suspect]
     Indication: DEPRESSION
     Dosage: 50 MG, 1 D), ORAL, 50 MG, 1 D), ORAL, 150 MG, 1 D, ORAL), 75 MG, 1 D, ORAL
     Route: 048
     Dates: start: 20080119, end: 20080126
  3. LUVOX [Suspect]
     Indication: DEPRESSION
     Dosage: 50 MG, 1 D), ORAL, 50 MG, 1 D), ORAL, 150 MG, 1 D, ORAL), 75 MG, 1 D, ORAL
     Route: 048
     Dates: start: 20080127, end: 20080201
  4. LUVOX [Suspect]
     Indication: DEPRESSION
     Dosage: 50 MG, 1 D), ORAL, 50 MG, 1 D), ORAL, 150 MG, 1 D, ORAL), 75 MG, 1 D, ORAL
     Route: 048
     Dates: start: 20080202, end: 20080208
  5. LUVOX [Suspect]
     Indication: DEPRESSION
     Dosage: 50 MG, 1 D), ORAL, 50 MG, 1 D), ORAL, 150 MG, 1 D, ORAL), 75 MG, 1 D, ORAL
     Route: 048
     Dates: start: 20080209, end: 20080214
  6. LUVOX [Suspect]
     Indication: DEPRESSION
     Dosage: 50 MG, 1 D), ORAL, 50 MG, 1 D), ORAL, 150 MG, 1 D, ORAL), 75 MG, 1 D, ORAL
     Route: 048
     Dates: start: 20080215, end: 20080218
  7. TEPRENONE (TEPRENONE) [Concomitant]
  8. METOCLOPRAMIDE [Concomitant]
  9. CLOTIAZEPAM (CLOTIAZEPAM) [Concomitant]
  10. FLUNITRAZEPAM (FLUNITRAZEPAM) [Concomitant]
  11. MOSAPRIDE CITRATE (MOSAPRIDE CITRATE) [Concomitant]
  12. NON-PYRINE COLD PREPARATION [Concomitant]
  13. ETIZOLAM (ETIZOLAM) [Concomitant]
  14. TRIAZOLAM [Concomitant]
  15. FLURAZEPAM HCL [Concomitant]

REACTIONS (6)
  - ACTIVATION SYNDROME [None]
  - HOSTILITY [None]
  - HYPERKINESIA [None]
  - INSOMNIA [None]
  - IRRITABILITY [None]
  - NAUSEA [None]
